FAERS Safety Report 7005830-8 (Version None)
Quarter: 2010Q3

REPORT INFORMATION
  Report Type: 
  Country: None (occurrence: None)
  Receive Date: 20100921
  Receipt Date: 20100917
  Transmission Date: 20110219
  Serious: Yes (Other)
  Sender: FDA-Public Use
  Company Number: FR-ELI_LILLY_AND_COMPANY-FR201007004534

PATIENT
  Age: 71 Year
  Sex: Male
  Weight: 75 kg

DRUGS (4)
  1. HUMALOG [Suspect]
     Indication: TYPE 1 DIABETES MELLITUS
     Dosage: 8 IU, 3/D
     Route: 058
     Dates: start: 20100401
  2. LANTUS OPTISET [Concomitant]
     Indication: TYPE 1 DIABETES MELLITUS
     Dosage: 30 IU, DAILY (1/D)
     Route: 058
  3. SEREVENT [Concomitant]
     Dosage: UNK, AS NEEDED
     Route: 055
  4. BECOTIDE [Concomitant]
     Dosage: UNK, AS NEEDED
     Route: 055

REACTIONS (2)
  - HYPOGLYCAEMIC UNCONSCIOUSNESS [None]
  - OFF LABEL USE [None]
